FAERS Safety Report 16902666 (Version 2)
Quarter: 2019Q4

REPORT INFORMATION
  Report Type: Spontaneous
  Country: GB (occurrence: GB)
  Receive Date: 20191010
  Receipt Date: 20191019
  Transmission Date: 20200122
  Serious: Yes (Other)
  Sender: FDA-Public Use
  Company Number: GB-AUROBINDO-AUR-APL-2019-064650

PATIENT
  Age: 63 Year
  Sex: Male
  Weight: 79.37 kg

DRUGS (2)
  1. CLENIL MODULITE [Concomitant]
     Active Substance: BECLOMETHASONE DIPROPIONATE
     Indication: PRODUCT USED FOR UNKNOWN INDICATION
     Dosage: UNK
     Route: 065
  2. FINASTERIDE. [Suspect]
     Active Substance: FINASTERIDE
     Indication: BENIGN PROSTATIC HYPERPLASIA
     Dosage: 5 MILLIGRAM
     Route: 048
     Dates: start: 2017

REACTIONS (4)
  - Ejaculation delayed [Not Recovered/Not Resolved]
  - Ejaculation disorder [Not Recovered/Not Resolved]
  - Erectile dysfunction [Recovering/Resolving]
  - Semen volume decreased [Not Recovered/Not Resolved]

NARRATIVE: CASE EVENT DATE: 2017
